FAERS Safety Report 6758646-1 (Version None)
Quarter: 2010Q2

REPORT INFORMATION
  Report Type: 
  Country: None (occurrence: None)
  Receive Date: 20100607
  Receipt Date: 20100524
  Transmission Date: 20101027
  Serious: Yes (Other)
  Sender: FDA-Public Use
  Company Number: ES-ROCHE-707435

PATIENT
  Age: 14 Year
  Sex: Male

DRUGS (4)
  1. ENFUVIRTIDE [Suspect]
     Indication: HIV INFECTION
     Route: 065
  2. RITONAVIR [Suspect]
     Indication: HIV INFECTION
     Route: 065
  3. TENOFOVIR [Suspect]
     Indication: HIV INFECTION
     Route: 065
  4. TIPRANAVIR [Suspect]
     Indication: HIV INFECTION
     Route: 065

REACTIONS (1)
  - VIROLOGIC FAILURE [None]
